FAERS Safety Report 4360243-2 (Version None)
Quarter: 2004Q2

REPORT INFORMATION
  Report Type: 
  Country: None (occurrence: None)
  Receive Date: 20040518
  Receipt Date: 20040518
  Transmission Date: 20050107
  Serious: Yes (Death, Hospitalization)
  Sender: FDA-Public Use
  Company Number: None

PATIENT
  Sex: Female

DRUGS (4)
  1. CELEBREX [Suspect]
     Dosage: 200 MG BID
     Dates: start: 20020108
  2. NORCO (PARACETAMOL, HYDROCODONE BITARTRATE) 10/325 MG [Suspect]
     Dosage: 2DF Q4H
     Dates: start: 20020108
  3. OXYCONTIN [Suspect]
     Dosage: 40 MG QID
     Dates: start: 20020108
  4. PREMARIN [Suspect]
     Dosage: 0.9 MG QD
     Dates: start: 20020108

REACTIONS (10)
  - CONFUSIONAL STATE [None]
  - HAEMORRHAGE [None]
  - HEART RATE INCREASED [None]
  - INFLAMMATION [None]
  - NAUSEA [None]
  - PAIN [None]
  - PANCREATITIS [None]
  - PEPTIC ULCER [None]
  - SHOCK [None]
  - VOMITING [None]
